FAERS Safety Report 20561835 (Version 2)
Quarter: 2022Q3

REPORT INFORMATION
  Report Type: Spontaneous
  Country: FI (occurrence: FI)
  Receive Date: 20220307
  Receipt Date: 20220725
  Transmission Date: 20221027
  Serious: Yes (Hospitalization, Other)
  Sender: FDA-Public Use
  Company Number: FI-PURDUE PHARMA-USA-2022-0291807

PATIENT
  Age: 3 Decade
  Sex: Male

DRUGS (3)
  1. OXYCODONE HYDROCHLORIDE [Interacting]
     Active Substance: OXYCODONE HYDROCHLORIDE
     Indication: Product used for unknown indication
     Dosage: UNKNOWN
     Route: 065
  2. OXYCODONE HYDROCHLORIDE [Interacting]
     Active Substance: OXYCODONE HYDROCHLORIDE
     Dosage: UNKNOWN
     Route: 042
  3. CANNABIS SATIVA SUBSP. INDICA TOP [Interacting]
     Active Substance: CANNABIS SATIVA SUBSP. INDICA TOP
     Indication: Product used for unknown indication
     Dosage: UNKNOWN
     Route: 065

REACTIONS (8)
  - Myelopathy [Not Recovered/Not Resolved]
  - Rhabdomyolysis [Unknown]
  - Substance abuse [Unknown]
  - Somnolence [Unknown]
  - Quadriparesis [Unknown]
  - Drug interaction [Unknown]
  - Compartment syndrome [Unknown]
  - Somnolence [Unknown]
